FAERS Safety Report 4684846-0 (Version None)
Quarter: 2005Q2

REPORT INFORMATION
  Report Type: 
  Country: None (occurrence: None)
  Receive Date: 20050531
  Receipt Date: 20041102
  Transmission Date: 20051028
  Serious: Yes (Hospitalization)
  Sender: FDA-Public Use
  Company Number: USA041182975

PATIENT
  Age: 42 Year
  Sex: Female

DRUGS (3)
  1. ZYPREXA [Suspect]
     Indication: BIPOLAR DISORDER
     Dates: start: 20030201, end: 20031001
  2. ZOLOFT [Concomitant]
  3. VALIUM [Concomitant]

REACTIONS (2)
  - FEELING ABNORMAL [None]
  - SUICIDE ATTEMPT [None]
